FAERS Safety Report 7769258-5 (Version None)
Quarter: 2011Q3

REPORT INFORMATION
  Report Type: 
  Country: None (occurrence: None)
  Receive Date: 20110922
  Receipt Date: 20110914
  Transmission Date: 20111222
  Serious: No
  Sender: FDA-Public Use
  Company Number: JP-ROCHE-793605

PATIENT
  Sex: Male

DRUGS (6)
  1. AVASTIN [Suspect]
     Route: 041
     Dates: start: 20110819
  2. OXALIPLATIN [Concomitant]
     Dosage: NOTE: DOSAGE IS UNCERTAIN.
     Route: 041
     Dates: start: 20110527
  3. AVASTIN [Suspect]
     Indication: COLON CANCER RECURRENT
     Dosage: DOSE DECREASED
     Route: 041
     Dates: start: 20110218, end: 20110101
  4. XELODA [Suspect]
     Indication: COLON CANCER RECURRENT
     Dosage: NOTE: IT IS ONE ADMINISTERING WEEKLY HOLIDAY MEDICINE FOR TWO WEEKS.
     Route: 048
     Dates: start: 20110218
  5. OXALIPLATIN [Concomitant]
     Dosage: NOTE: DOSAGE IS UNCERTAIN.
     Route: 041
     Dates: start: 20110218, end: 20110101
  6. AVASTIN [Suspect]
     Route: 041
     Dates: start: 20110527, end: 20110101

REACTIONS (2)
  - WHITE BLOOD CELL COUNT DECREASED [None]
  - BLOOD PRESSURE INCREASED [None]
